FAERS Safety Report 8578225-3 (Version None)
Quarter: 2012Q3

REPORT INFORMATION
  Report Type: 
  Country: None (occurrence: None)
  Receive Date: 20120808
  Receipt Date: 20120803
  Transmission Date: 20120928
  Serious: No
  Sender: FDA-Public Use
  Company Number: US-PFIZER INC-2012147866

PATIENT
  Age: 66 Year
  Sex: Male

DRUGS (9)
  1. ASPIRIN [Concomitant]
     Dosage: UNK
  2. AVODART [Concomitant]
     Indication: BENIGN PROSTATIC HYPERPLASIA
     Dosage: 0.5 MG, UNK
  3. ISTALOL [Concomitant]
     Dosage: UNK
  4. MULTI-VITAMINS [Concomitant]
     Dosage: UNK
  5. SUTENT [Suspect]
     Indication: RENAL CELL CARCINOMA
     Dosage: 50 MG, 1X/DAY FOR 4 WEEKS EVERY 6 WEEKS
     Route: 048
     Dates: start: 20120601, end: 20120701
  6. LIPITOR [Concomitant]
     Indication: HYPERCHOLESTEROLAEMIA
     Dosage: 40 MG, UNK
  7. TYLENOL [Concomitant]
     Dosage: UNK
  8. LATANOPROST [Concomitant]
  9. FISH OIL [Concomitant]
     Dosage: UNK

REACTIONS (9)
  - ABDOMINAL PAIN [None]
  - AGEUSIA [None]
  - DECREASED APPETITE [None]
  - DIARRHOEA [None]
  - FATIGUE [None]
  - DYSPEPSIA [None]
  - DYSGEUSIA [None]
  - PALMAR-PLANTAR ERYTHRODYSAESTHESIA SYNDROME [None]
  - WEIGHT DECREASED [None]
